FAERS Safety Report 13343852 (Version 1)
Quarter: 2017Q1

REPORT INFORMATION
  Report Type: Spontaneous
  Country: NL (occurrence: NL)
  Receive Date: 20170316
  Receipt Date: 20170316
  Transmission Date: 20170428
  Serious: Yes (Other)
  Sender: FDA-Public Use
  Company Number: NL-ABBVIE-17P-114-1908044-00

PATIENT
  Age: 21 Year
  Sex: Female

DRUGS (3)
  1. DEPAKINE [Suspect]
     Active Substance: VALPROATE SODIUM
     Indication: PETIT MAL EPILEPSY
     Route: 048
     Dates: start: 20160916
  2. DEPAKINE [Suspect]
     Active Substance: VALPROATE SODIUM
     Route: 048
     Dates: start: 201701
  3. LAMOTRIGINE. [Concomitant]
     Active Substance: LAMOTRIGINE
     Indication: PRODUCT USED FOR UNKNOWN INDICATION
     Dates: start: 20160916

REACTIONS (3)
  - Optic atrophy [Unknown]
  - Visual acuity reduced [Unknown]
  - Tremor [Unknown]

NARRATIVE: CASE EVENT DATE: 201701
